FAERS Safety Report 12589433 (Version 1)
Quarter: 2016Q3

REPORT INFORMATION
  Report Type: Other
  Country: US (occurrence: US)
  Receive Date: 20160725
  Receipt Date: 20160725
  Transmission Date: 20161109
  Serious: Yes (Other)
  Sender: FDA-Public Use
  Company Number: US-NEXGEN PHARMA, INC.-1055512

PATIENT
  Age: 33 Year
  Sex: Male

DRUGS (2)
  1. CHENODIOL. [Suspect]
     Active Substance: CHENODIOL
     Route: 048
  2. CHENODIOL TABLETS [Suspect]
     Active Substance: CHENODIOL
     Indication: XANTHOMATOSIS

REACTIONS (4)
  - Diarrhoea [Recovering/Resolving]
  - Abdominal pain upper [None]
  - Dehydration [None]
  - Joint stiffness [None]

NARRATIVE: CASE EVENT DATE: 20160605
